FAERS Safety Report 17971063 (Version 1)
Quarter: 2020Q3

REPORT INFORMATION
  Report Type: Spontaneous
  Country: NL (occurrence: IE)
  Receive Date: 20200701
  Receipt Date: 20200701
  Transmission Date: 20201103
  Serious: Yes (Death)
  Sender: FDA-Public Use
  Company Number: IE-FRESENIUS KABI-FK202003849

PATIENT
  Weight: 69.4 kg

DRUGS (4)
  1. ETOPOSIDE (MANUFACTURER UNKNOWN) [Suspect]
     Active Substance: ETOPOSIDE
     Route: 065
     Dates: start: 20180611, end: 20180926
  2. ETOPOSIDE (MANUFACTURER UNKNOWN) [Suspect]
     Active Substance: ETOPOSIDE
     Indication: HEPATIC CANCER METASTATIC
     Route: 065
     Dates: start: 201810
  3. ATEZOLIZUMAB. [Suspect]
     Active Substance: ATEZOLIZUMAB
     Indication: HEPATIC CANCER METASTATIC
     Route: 042
  4. CARBOPLATIN (MANUFACTURER UNKNOWN) [Suspect]
     Active Substance: CARBOPLATIN
     Indication: HEPATIC CANCER METASTATIC
     Dosage: 6 CYCLES
     Route: 065
     Dates: start: 20180611, end: 20180926

REACTIONS (4)
  - Renal disorder [Unknown]
  - Death [Fatal]
  - Off label use [Unknown]
  - Intentional product use issue [Unknown]
